FAERS Safety Report 4651887-9 (Version None)
Quarter: 2005Q2

REPORT INFORMATION
  Report Type: 
  Country: None (occurrence: None)
  Receive Date: 20050504
  Receipt Date: 20050425
  Transmission Date: 20051028
  Serious: Yes (Other)
  Sender: FDA-Public Use
  Company Number: 2005JP000852

PATIENT
  Age: 50 Year
  Sex: Female

DRUGS (10)
  1. CEFAZOLIN [Suspect]
     Indication: DRUG USE FOR UNKNOWN INDICATION
     Route: 042
  2. ULTANE [Suspect]
     Indication: DRUG USE FOR UNKNOWN INDICATION
     Route: 065
  3. FENTANEST [Suspect]
     Indication: DRUG USE FOR UNKNOWN INDICATION
     Route: 065
  4. XYLOCAINE [Suspect]
     Indication: DRUG USE FOR UNKNOWN INDICATION
     Route: 065
  5. DIPRIVAN [Suspect]
     Indication: DRUG USE FOR UNKNOWN INDICATION
     Route: 065
  6. VECURONIUM BROMIDE [Suspect]
     Indication: DRUG USE FOR UNKNOWN INDICATION
     Route: 065
  7. LEPETAN [Suspect]
     Indication: DRUG USE FOR UNKNOWN INDICATION
     Route: 065
  8. MARCAINE [Suspect]
     Indication: DRUG USE FOR UNKNOWN INDICATION
     Route: 065
  9. LASIX [Suspect]
     Indication: DRUG USE FOR UNKNOWN INDICATION
     Route: 065
  10. PANTOL [Suspect]
     Indication: DRUG USE FOR UNKNOWN INDICATION
     Route: 065

REACTIONS (3)
  - ALANINE AMINOTRANSFERASE INCREASED [None]
  - ASPARTATE AMINOTRANSFERASE INCREASED [None]
  - HEPATIC FUNCTION ABNORMAL [None]
